FAERS Safety Report 8602829-2 (Version None)
Quarter: 2012Q3

REPORT INFORMATION
  Report Type: 
  Country: None (occurrence: None)
  Receive Date: 20120817
  Receipt Date: 20110304
  Transmission Date: 20120928
  Serious: Yes (Other)
  Sender: FDA-Public Use
  Company Number: CA-GLAXOSMITHKLINE-A0916612A

PATIENT
  Sex: Female

DRUGS (2)
  1. XELODA [Concomitant]
  2. TYKERB [Suspect]
     Indication: BREAST CANCER METASTATIC
     Dosage: 1250MG PER DAY
     Route: 048
     Dates: start: 20110126, end: 20111001

REACTIONS (5)
  - HEPATIC ENZYME INCREASED [None]
  - INFLAMMATION [None]
  - PARAESTHESIA [None]
  - ASTHENIA [None]
  - PAIN IN EXTREMITY [None]
